FAERS Safety Report 24379732 (Version 1)
Quarter: 2024Q3

REPORT INFORMATION
  Report Type: Spontaneous
  Country: IT (occurrence: IT)
  Receive Date: 20240930
  Receipt Date: 20240930
  Transmission Date: 20241017
  Serious: Yes (Death)
  Sender: TEVA
  Company Number: IT-TEVA-VS-3247732

PATIENT
  Age: 66 Year
  Sex: Male

DRUGS (8)
  1. IMATINIB [Suspect]
     Active Substance: IMATINIB
     Indication: Systemic mastocytosis
     Route: 065
  2. AVAPRITINIB [Suspect]
     Active Substance: AVAPRITINIB
     Indication: Diffuse large B-cell lymphoma
     Route: 065
  3. VINCRISTINE [Suspect]
     Active Substance: VINCRISTINE
     Indication: Diffuse large B-cell lymphoma
     Route: 065
  4. DOXORUBICIN [Suspect]
     Active Substance: DOXORUBICIN
     Indication: Diffuse large B-cell lymphoma
     Route: 065
  5. RITUXIMAB [Suspect]
     Active Substance: RITUXIMAB
     Indication: Diffuse large B-cell lymphoma
     Route: 065
  6. CYCLOPHOSPHAMIDE [Suspect]
     Active Substance: CYCLOPHOSPHAMIDE
     Indication: Diffuse large B-cell lymphoma
     Route: 065
  7. MIDOSTAURIN [Concomitant]
     Active Substance: MIDOSTAURIN
     Indication: Systemic mastocytosis
     Route: 065
     Dates: start: 201703
  8. PREDNISONE [Suspect]
     Active Substance: PREDNISONE
     Indication: Diffuse large B-cell lymphoma
     Route: 065

REACTIONS (1)
  - Drug ineffective [Fatal]
